FAERS Safety Report 4712711-9 (Version None)
Quarter: 2005Q3

REPORT INFORMATION
  Report Type: 
  Country: None (occurrence: None)
  Receive Date: 20050706
  Receipt Date: 20050512
  Transmission Date: 20060218
  Serious: No
  Sender: FDA-Public Use
  Company Number: 0205015

PATIENT
  Sex: Female

DRUGS (1)
  1. DEPODUR [Suspect]

REACTIONS (1)
  - RESPIRATORY DEPRESSION [None]
